FAERS Safety Report 10065389 (Version 2)
Quarter: 2014Q2

REPORT INFORMATION
  Report Type: Spontaneous
  Country: US (occurrence: US)
  Receive Date: 20140408
  Receipt Date: 20140620
  Transmission Date: 20141212
  Serious: Yes (Other)
  Sender: FDA-Public Use
  Company Number: US-BAYER-2014-051540

PATIENT
  Age: 21 Year
  Sex: Female
  Weight: 102.4 kg

DRUGS (4)
  1. MIRENA [Suspect]
     Indication: CONTRACEPTION
     Dosage: 20 MCG/24HR, CONT
     Route: 015
     Dates: start: 20111219
  2. MIRENA [Suspect]
     Indication: MENSTRUAL CYCLE MANAGEMENT
  3. MIRENA [Suspect]
     Indication: DYSMENORRHOEA
  4. RETIN A [Concomitant]
     Dosage: 0.25% CREAM

REACTIONS (10)
  - Weight increased [Not Recovered/Not Resolved]
  - Mood swings [Not Recovered/Not Resolved]
  - Mood altered [Not Recovered/Not Resolved]
  - Acne [None]
  - Fatigue [None]
  - Abdominal pain [None]
  - Hyperhidrosis [None]
  - Genital haemorrhage [None]
  - Irritability [Not Recovered/Not Resolved]
  - Crying [Not Recovered/Not Resolved]
